FAERS Safety Report 12181566 (Version 1)
Quarter: 2016Q1

REPORT INFORMATION
  Report Type: Other
  Country: DE (occurrence: DE)
  Receive Date: 20160315
  Receipt Date: 20160315
  Transmission Date: 20160526
  Serious: Yes (Other)
  Sender: FDA-Public Use
  Company Number: DE-MYLANLABS-2016M1010569

PATIENT

DRUGS (1)
  1. LEVOFLOXACIN. [Suspect]
     Active Substance: LEVOFLOXACIN
     Indication: BACTERIAL INFECTION
     Dosage: 500 MG, QD (DAILY DOSE: 500 MG MILLGRAM(S) EVERY DAYS)
     Route: 048
     Dates: start: 20160206

REACTIONS (8)
  - Dizziness [Recovering/Resolving]
  - Heart rate increased [Recovering/Resolving]
  - Pain in extremity [Recovering/Resolving]
  - Ear discomfort [Recovering/Resolving]
  - Arrhythmia [Recovering/Resolving]
  - Breast oedema [Recovering/Resolving]
  - Breast pain [Recovering/Resolving]
  - Restlessness [Recovering/Resolving]

NARRATIVE: CASE EVENT DATE: 20160207
